FAERS Safety Report 25012705 (Version 2)
Quarter: 2025Q1

REPORT INFORMATION
  Report Type: Spontaneous
  Country: PT (occurrence: PT)
  Receive Date: 20250226
  Receipt Date: 20250317
  Transmission Date: 20250408
  Serious: Yes (Other)
  Sender: MERCK SHARP & DOHME LLC
  Company Number: None

PATIENT
  Age: 55 Year
  Sex: Male

DRUGS (1)
  1. KEYTRUDA [Suspect]
     Active Substance: PEMBROLIZUMAB
     Indication: Lung adenocarcinoma
     Dosage: 200 MG 21/21 DAYS, STRENGTH 25 MG/ML
     Route: 042
     Dates: start: 20240809

REACTIONS (2)
  - Thyroxine decreased [Recovering/Resolving]
  - Blood thyroid stimulating hormone increased [Recovering/Resolving]

NARRATIVE: CASE EVENT DATE: 20241213
